FAERS Safety Report 10091739 (Version 1)
Quarter: 2014Q2

REPORT INFORMATION
  Report Type: Spontaneous
  Country: US (occurrence: US)
  Receive Date: 20140421
  Receipt Date: 20140421
  Transmission Date: 20141212
  Serious: Yes (Other)
  Sender: FDA-Public Use
  Company Number: US-PURDUE-USA-2003-0009295

PATIENT
  Age: 48 Year
  Sex: Male

DRUGS (3)
  1. OXYFAST CONCENTRATE 20 MG/ML [Suspect]
     Indication: PAIN
     Dosage: UNK MG/ML, UNK
     Route: 048
     Dates: start: 200306
  2. MS CONTIN TABLETS [Suspect]
     Indication: PAIN
     Dosage: 100 MG, Q12H
     Route: 048
     Dates: start: 2000
  3. VALIUM                             /00017001/ [Concomitant]
     Indication: PRODUCT USED FOR UNKNOWN INDICATION
     Dosage: 5 MG, Q6H
     Route: 048

REACTIONS (1)
  - Drug ineffective [Unknown]
